FAERS Safety Report 12599333 (Version 3)
Quarter: 2016Q3

REPORT INFORMATION
  Report Type: Spontaneous
  Country: AR (occurrence: AR)
  Receive Date: 20160727
  Receipt Date: 20160927
  Transmission Date: 20161109
  Serious: Yes (Other)
  Sender: FDA-Public Use
  Company Number: AR-PFIZER INC-2016190372

PATIENT
  Age: 76 Year
  Sex: Male

DRUGS (3)
  1. INLYTA [Suspect]
     Active Substance: AXITINIB
     Dosage: 1 DF, EVERY OTHER DAY
     Dates: start: 2016, end: 20160523
  2. INLYTA [Suspect]
     Active Substance: AXITINIB
     Indication: RENAL CELL CARCINOMA
     Dosage: 10 MG, DAILY
     Dates: start: 20160201, end: 20160317
  3. INLYTA [Suspect]
     Active Substance: AXITINIB
     Dosage: 5 MG, ALTERNATE DAY
     Dates: start: 2016, end: 2016

REACTIONS (21)
  - Blood pressure increased [Not Recovered/Not Resolved]
  - Injury [Not Recovered/Not Resolved]
  - Musculoskeletal stiffness [Not Recovered/Not Resolved]
  - Influenza [Recovering/Resolving]
  - Negativism [Recovering/Resolving]
  - Peripheral swelling [Not Recovered/Not Resolved]
  - Asthenia [Recovering/Resolving]
  - Gait disturbance [Recovering/Resolving]
  - Localised infection [Not Recovered/Not Resolved]
  - Tumour pain [Recovered/Resolved]
  - Tendon pain [Not Recovered/Not Resolved]
  - Hip fracture [Recovering/Resolving]
  - Fall [Not Recovered/Not Resolved]
  - Cough [Recovering/Resolving]
  - Disease progression [Not Recovered/Not Resolved]
  - Dizziness [Not Recovered/Not Resolved]
  - Depression [Recovering/Resolving]
  - Muscular weakness [Recovering/Resolving]
  - Renal cell carcinoma [Not Recovered/Not Resolved]
  - Food intolerance [Recovering/Resolving]
  - Listless [Recovering/Resolving]

NARRATIVE: CASE EVENT DATE: 2016
